FAERS Safety Report 13640029 (Version 1)
Quarter: 2017Q2

REPORT INFORMATION
  Report Type: Spontaneous
  Country: US (occurrence: US)
  Receive Date: 20170609
  Receipt Date: 20170609
  Transmission Date: 20170830
  Serious: No
  Sender: FDA-Public Use
  Company Number: US-ROCHE-1295935

PATIENT
  Sex: Female

DRUGS (7)
  1. CLONAZEPAM. [Suspect]
     Active Substance: CLONAZEPAM
     Indication: SEIZURE
     Route: 048
  2. CLONAZEPAM. [Suspect]
     Active Substance: CLONAZEPAM
     Route: 048
  3. VALIUM [Suspect]
     Active Substance: DIAZEPAM
     Indication: GENERALISED TONIC-CLONIC SEIZURE
     Route: 065
  4. TOPAMAX [Concomitant]
     Active Substance: TOPIRAMATE
     Route: 065
  5. NEURONTIN [Concomitant]
     Active Substance: GABAPENTIN
  6. PRIMIDON [Concomitant]
     Active Substance: PRIMIDONE
  7. DARVON [Concomitant]
     Active Substance: PROPOXYPHENE HYDROCHLORIDE

REACTIONS (10)
  - Blindness [Not Recovered/Not Resolved]
  - Migraine [Not Recovered/Not Resolved]
  - Hallucination, olfactory [Not Recovered/Not Resolved]
  - Visual impairment [Not Recovered/Not Resolved]
  - Balance disorder [Not Recovered/Not Resolved]
  - Epistaxis [Not Recovered/Not Resolved]
  - Amnesia [Unknown]
  - Dry mouth [Not Recovered/Not Resolved]
  - Ear discomfort [Not Recovered/Not Resolved]
  - Bruxism [Not Recovered/Not Resolved]
